FAERS Safety Report 23055709 (Version 1)
Quarter: 2023Q4

REPORT INFORMATION
  Report Type: Spontaneous
  Country: IT (occurrence: None)
  Receive Date: 20231011
  Receipt Date: 20231011
  Transmission Date: 20240109
  Serious: Yes (Other)
  Sender: FDA-Public Use
  Company Number: 2023A224543

PATIENT
  Age: 48 Year
  Sex: Male

DRUGS (17)
  1. ANIFROLUMAB [Suspect]
     Active Substance: ANIFROLUMAB
     Indication: Systemic lupus erythematosus
     Dosage: THE PATIENT TOOK ANIFROLUMAB 300 MG PER MONTH INTRAVENOUSLY, FIRST ADMINISTRATION TAKING PLACE ON...
     Route: 042
     Dates: start: 20230612, end: 20230731
  2. ANIFROLUMAB [Suspect]
     Active Substance: ANIFROLUMAB
     Indication: Rheumatoid arthritis
     Dosage: THE PATIENT TOOK ANIFROLUMAB 300 MG PER MONTH INTRAVENOUSLY, FIRST ADMINISTRATION TAKING PLACE ON...
     Route: 042
     Dates: start: 20230612, end: 20230731
  3. FOLIDAR [Concomitant]
     Indication: Systemic lupus erythematosus
     Dosage: THE PATIENT IS TREATED WITH FOLIDAR. INDICATION THERAPEUTIC: LUPUS ERYTHEMATOSUS + RHEUMATOID ART...
     Route: 048
  4. FOLIDAR [Concomitant]
     Indication: Rheumatoid arthritis
     Dosage: THE PATIENT IS TREATED WITH FOLIDAR. INDICATION THERAPEUTIC: LUPUS ERYTHEMATOSUS + RHEUMATOID ART...
     Route: 048
  5. METHOTREXATE [Concomitant]
     Active Substance: METHOTREXATE
     Indication: Systemic lupus erythematosus
     Route: 058
  6. METHOTREXATE [Concomitant]
     Active Substance: METHOTREXATE
     Indication: Rheumatoid arthritis
     Route: 058
  7. CALCIUM CARBONATE\CHOLECALCIFEROL [Concomitant]
     Active Substance: CALCIUM CARBONATE\CHOLECALCIFEROL
     Indication: Systemic lupus erythematosus
     Dosage: THE PATIENT TAKES IDEOS 2 TABLETS PER DAY FOR OS.
     Route: 048
  8. CALCIUM CARBONATE\CHOLECALCIFEROL [Concomitant]
     Active Substance: CALCIUM CARBONATE\CHOLECALCIFEROL
     Indication: Rheumatoid arthritis
     Dosage: THE PATIENT TAKES IDEOS 2 TABLETS PER DAY FOR OS.
     Route: 048
  9. CHOLECALCIFEROL [Concomitant]
     Active Substance: CHOLECALCIFEROL
     Indication: Systemic lupus erythematosus
     Dosage: PATIENT TAKES DIBASE 10,000 IU 35 DROPS A WEEK, THERAPEUTIC INDICATION: LUPUS ERYTHEMATOSUS+ RHEU...
     Route: 048
  10. CHOLECALCIFEROL [Concomitant]
     Active Substance: CHOLECALCIFEROL
     Indication: Rheumatoid arthritis
     Dosage: PATIENT TAKES DIBASE 10,000 IU 35 DROPS A WEEK, THERAPEUTIC INDICATION: LUPUS ERYTHEMATOSUS+ RHEU...
     Route: 048
  11. CITALOPRAM [Concomitant]
     Active Substance: CITALOPRAM HYDROBROMIDE
     Indication: Mixed anxiety and depressive disorder
     Dosage: PATIENT TAKES CITALOPRAM 20 MG ORALLY DAILY
     Route: 048
  12. PANTOPRAZOLE [Concomitant]
     Active Substance: PANTOPRAZOLE
     Indication: Rheumatoid arthritis
     Route: 048
  13. PANTOPRAZOLE [Concomitant]
     Active Substance: PANTOPRAZOLE
     Indication: Systemic lupus erythematosus
     Route: 048
  14. METHYLPREDNISOLONE [Concomitant]
     Active Substance: METHYLPREDNISOLONE
     Indication: Rheumatoid arthritis
     Route: 048
  15. METHYLPREDNISOLONE [Concomitant]
     Active Substance: METHYLPREDNISOLONE
     Indication: Systemic lupus erythematosus
     Route: 048
  16. FENTANYL [Concomitant]
     Active Substance: FENTANYL
     Indication: Rheumatoid arthritis
     Dosage: THE PATIENT TAKES FENTANYL TRANSDERMAL 50 MCG/H EVERY 3 DAYS.
     Route: 062
  17. XANAX [Concomitant]
     Active Substance: ALPRAZOLAM
     Indication: Mixed anxiety and depressive disorder
     Dosage: PATIENT TAKES XANAX 0.5 MILLIGRAMS DAILY BY ORAL ADMINISTRATION
     Route: 048

REACTIONS (1)
  - Rheumatoid arthritis [Recovered/Resolved]

NARRATIVE: CASE EVENT DATE: 20230615
